FAERS Safety Report 6469704-3 (Version None)
Quarter: 2009Q4

REPORT INFORMATION
  Report Type: 
  Country: None (occurrence: None)
  Receive Date: 20091203
  Receipt Date: 20071017
  Transmission Date: 20100525
  Serious: Yes (Hospitalization)
  Sender: FDA-Public Use
  Company Number: US-ELI_LILLY_AND_COMPANY-US200710004269

PATIENT
  Sex: Female
  Weight: 136.96 kg

DRUGS (4)
  1. BYETTA [Suspect]
     Indication: TYPE 2 DIABETES MELLITUS
     Dosage: 5 UG, 2/D
     Route: 058
     Dates: start: 20060101, end: 20060101
  2. BYETTA [Suspect]
     Dosage: 10 UG, 2/D
     Route: 058
     Dates: start: 20060101, end: 20071011
  3. GLUCOVANCE [Concomitant]
     Indication: DIABETES MELLITUS
     Dosage: UNK, 2/D
     Route: 048
     Dates: end: 20071011
  4. GLUCOVANCE [Concomitant]
     Dosage: UNK MG, 2/D
     Route: 048
     Dates: start: 20071017

REACTIONS (4)
  - BENIGN OVARIAN TUMOUR [None]
  - BENIGN UTERINE NEOPLASM [None]
  - FLANK PAIN [None]
  - NAUSEA [None]
